FAERS Safety Report 25428091 (Version 1)
Quarter: 2025Q2

REPORT INFORMATION
  Report Type: Spontaneous
  Country: US (occurrence: US)
  Receive Date: 20250612
  Receipt Date: 20250612
  Transmission Date: 20250717
  Serious: Yes (Other)
  Sender: Unknown Manufacturer
  Company Number: US-KINIKSA PHARMACEUTICALS LTD.-2025KPU001544

PATIENT
  Age: 46 Year
  Sex: Female

DRUGS (2)
  1. ARCALYST [Suspect]
     Active Substance: RILONACEPT
     Indication: Pericarditis
     Dates: start: 20250220
  2. ARCALYST [Suspect]
     Active Substance: RILONACEPT
     Indication: Pericarditis
     Dosage: 160 MILLIGRAM, QW
     Dates: start: 20250311, end: 202505

REACTIONS (4)
  - Lupus-like syndrome [Unknown]
  - Rash [Recovered/Resolved]
  - Chest pain [Recovering/Resolving]
  - C-reactive protein decreased [Recovering/Resolving]

NARRATIVE: CASE EVENT DATE: 20250401
